FAERS Safety Report 7910003-8 (Version None)
Quarter: 2011Q4

REPORT INFORMATION
  Report Type: 
  Country: None (occurrence: None)
  Receive Date: 20111111
  Receipt Date: 20111108
  Transmission Date: 20120403
  Serious: Yes (Other)
  Sender: FDA-Public Use
  Company Number: DE-ELI_LILLY_AND_COMPANY-DE201110004645

PATIENT
  Age: 54 Year
  Sex: Male

DRUGS (6)
  1. TREDAPTIVE [Concomitant]
  2. CALCIUM [Concomitant]
  3. CIALIS [Suspect]
     Indication: ERECTILE DYSFUNCTION
     Dosage: 20 MG, UNKNOWN
  4. LANSOPRAZOLE [Concomitant]
  5. SIOFOR [Concomitant]
  6. MAGNESIUM [Concomitant]

REACTIONS (1)
  - ARRHYTHMIA SUPRAVENTRICULAR [None]
